FAERS Safety Report 9536094 (Version 1)
Quarter: 2013Q2

REPORT INFORMATION
  Report Type: Spontaneous
  Country: US (occurrence: None)
  Receive Date: 20130507
  Receipt Date: 20130507
  Transmission Date: 20140414
  Serious: No
  Sender: FDA-Public Use
  Company Number: PHEH2013US000463

PATIENT
  Sex: Female
  Weight: 170 kg

DRUGS (10)
  1. AFINITOR (RAD) TABLET, 10MG [Suspect]
     Route: 048
  2. AROMASIN (EXEMESTANE) TABLET [Concomitant]
  3. TRAMADOL (TRAMADOL) TABLET [Concomitant]
  4. FISH OIL (FISH OIL) CAPSULE [Concomitant]
  5. GLUCOSAMINE (GLUCOSAMINE) CAPSULE [Concomitant]
  6. VITAMIN D (ERGOCALCIFEROL) CAPSULE [Concomitant]
  7. VITAMIN B6 (PYRIDOXINE HYDROCHLORIDE) TABLET [Concomitant]
  8. CO Q-10 (UBIDECARENONE) [Concomitant]
  9. GLUCOPHAGE (METFORMIN HYDROCHLORIDE) TABLET [Concomitant]
  10. XGEVA (DENOSUMAB) [Concomitant]

REACTIONS (1)
  - Lung disorder [None]
